FAERS Safety Report 7518044-X (Version None)
Quarter: 2011Q2

REPORT INFORMATION
  Report Type: 
  Country: None (occurrence: None)
  Receive Date: 20110602
  Receipt Date: 20110525
  Transmission Date: 20111010
  Serious: Yes (Hospitalization, Other)
  Sender: FDA-Public Use
  Company Number: US-JNJFOC-20110511959

PATIENT

DRUGS (4)
  1. NUCYNTA [Suspect]
     Indication: COLECTOMY
     Route: 048
  2. NUCYNTA [Suspect]
     Indication: LAPAROSCOPIC SURGERY
     Route: 048
  3. FLAGYL [Suspect]
     Indication: COLECTOMY
     Route: 065
  4. FLAGYL [Suspect]
     Indication: LAPAROSCOPIC SURGERY
     Route: 065

REACTIONS (2)
  - NEUTROPENIA [None]
  - ILEUS [None]
